FAERS Safety Report 7802766-7 (Version None)
Quarter: 2011Q4

REPORT INFORMATION
  Report Type: 
  Country: None (occurrence: None)
  Receive Date: 20111007
  Receipt Date: 20111005
  Transmission Date: 20120403
  Serious: Yes (Death)
  Sender: FDA-Public Use
  Company Number: PHHY2011NL88311

PATIENT
  Sex: Female
  Weight: 79 kg

DRUGS (18)
  1. ACETAMINOPHEN [Concomitant]
     Dosage: 4 DF, BID
  2. LACTULOSE [Concomitant]
     Dosage: 2 DF, UNK
  3. IPRAMOL [Concomitant]
     Dosage: 4 DF, UNK
  4. SPIRONOLACTONE [Concomitant]
     Dosage: 1 DF, QD
  5. PREDNISOLONE ACETATE [Concomitant]
     Dosage: 75 MG, PER 24 HRS
  6. FUROSEMIDE [Concomitant]
     Dosage: 40 MG, DAILY
  7. BUMETANIDE [Concomitant]
     Dosage: 1 DF, BID
  8. LANOXIN [Concomitant]
     Dosage: 0.5 MG, UNK
  9. CIPROFLOXACIN [Suspect]
     Indication: PNEUMONIA
     Dosage: UNK
     Route: 042
     Dates: start: 20110903
  10. LANOXIN [Concomitant]
     Dosage: 0.25 MG, UNK
  11. OMEPRAZOLE [Concomitant]
  12. SINTROM [Concomitant]
  13. AMOXICILLIN AND CLAVULANATE POTASSIUM [Suspect]
     Indication: PNEUMONIA
     Dosage: UNK
     Route: 042
     Dates: start: 20110903
  14. LANOXIN [Concomitant]
     Dosage: .25 MG, UNK
  15. SULFASALAZINE [Concomitant]
     Dosage: 2 DF, QD
  16. CALCIUM CARBONATE W/COLECALCIFEROL [Concomitant]
     Dosage: 1 DF, BID
  17. ALENDRONINEZUUR KR [Concomitant]
     Dosage: 70 MG, QW
  18. FLUIMUCIL [Concomitant]
     Dosage: 200 MG, BID

REACTIONS (1)
  - DEATH [None]
